FAERS Safety Report 15277156 (Version 1)
Quarter: 2018Q3

REPORT INFORMATION
  Report Type: Spontaneous
  Country: US (occurrence: US)
  Receive Date: 20180814
  Receipt Date: 20180814
  Transmission Date: 20181010
  Serious: Yes (Other)
  Sender: FDA-Public Use
  Company Number: US-SA-2018SA158055

PATIENT
  Age: 62 Year
  Sex: Female

DRUGS (1)
  1. XYZAL ALLERGY 24HR [Suspect]
     Active Substance: LEVOCETIRIZINE DIHYDROCHLORIDE
     Dosage: ONE?HALF TABLET QD
     Route: 065
     Dates: start: 20180507, end: 20180607

REACTIONS (5)
  - Depression [Recovering/Resolving]
  - Pulmonary congestion [Recovering/Resolving]
  - Palpitations [Recovering/Resolving]
  - Product quality issue [Unknown]
  - Insomnia [Recovering/Resolving]
